FAERS Safety Report 9607607 (Version 3)
Quarter: 2013Q4

REPORT INFORMATION
  Report Type: Report from Study
  Country: JP (occurrence: JP)
  Receive Date: 20131009
  Receipt Date: 20131203
  Transmission Date: 20140711
  Serious: Yes (Death, Other)
  Sender: FDA-Public Use
  Company Number: PHHY2013JP077151

PATIENT
  Age: 83 Year
  Sex: Male

DRUGS (8)
  1. EXELON [Suspect]
     Indication: DEMENTIA ALZHEIMER^S TYPE
     Dosage: 1.9 MG/24 HOURS (4.5 MG DAILY)
     Route: 062
     Dates: start: 20120206, end: 20120304
  2. EXELON [Suspect]
     Dosage: 4.6 MG/24 HOURS (9 MG DAILY)
     Route: 062
     Dates: start: 20120305, end: 20120326
  3. EXELON [Suspect]
     Dosage: 6.9 MG/24 HOURS (13.5 MG DAILY)
     Route: 062
     Dates: start: 20120327, end: 20120423
  4. EXELON [Suspect]
     Dosage: 9.5 MG/24 HOURS (18 MG DAILY)
     Route: 062
     Dates: start: 20120424, end: 20120729
  5. DIART [Concomitant]
     Indication: CARDIAC FAILURE
     Dosage: 60 MG, UNK
     Route: 048
     Dates: end: 20120720
  6. BLOPRESS [Concomitant]
     Indication: HYPERTENSION
     Dosage: 4 MG, UNK
     Route: 048
     Dates: end: 20120720
  7. ZYRTEC [Concomitant]
     Indication: URTICARIA
     Dosage: 10 MG, UNK
     Route: 048
     Dates: end: 20120720
  8. PARIET [Concomitant]
     Indication: GASTRIC ULCER
     Dosage: 10 MG, UNK
     Route: 048
     Dates: end: 20120720

REACTIONS (2)
  - Bile duct cancer [Fatal]
  - Altered state of consciousness [Unknown]
